FAERS Safety Report 8202130-5 (Version None)
Quarter: 2012Q1

REPORT INFORMATION
  Report Type: 
  Country: None (occurrence: None)
  Receive Date: 20120312
  Receipt Date: 20120308
  Transmission Date: 20120608
  Serious: No
  Sender: FDA-Public Use
  Company Number: US-TEVA-327153USA

PATIENT
  Sex: Female
  Weight: 77.18 kg

DRUGS (4)
  1. CELEXA [Concomitant]
     Indication: DEPRESSION
  2. CONCERTA [Concomitant]
     Indication: ATTENTION DEFICIT/HYPERACTIVITY DISORDER
  3. PLAN B ONE-STEP [Suspect]
     Indication: POST COITAL CONTRACEPTION
     Dosage: 1.5 MILLIGRAM;
     Route: 048
     Dates: start: 20120201, end: 20120201
  4. XANAX [Concomitant]
     Indication: ANXIETY

REACTIONS (1)
  - MENSTRUATION IRREGULAR [None]
